FAERS Safety Report 8765508 (Version 1)
Quarter: 2012Q4

REPORT INFORMATION
  Report Type: 
  Country: DE (occurrence: DE)
  Receive Date: 20120903
  Receipt Date: 20120903
  Transmission Date: 20130627
  Serious: Yes (Death, Congenital Anomaly)
  Sender: FDA-Public Use
  Company Number: DE-PFIZER INC-2012209697

PATIENT
  Sex: Male
  Weight: .14 kg

DRUGS (1)
  1. SUMATRIPTAN SUCCINATE [Suspect]
     Indication: MIGRAINE
     Dosage: UNK
     Route: 064
     Dates: start: 20110609, end: 20111007

REACTIONS (2)
  - Foetal exposure during pregnancy [Fatal]
  - Renal aplasia [Fatal]
